FAERS Safety Report 24634835 (Version 2)
Quarter: 2025Q1

REPORT INFORMATION
  Report Type: Spontaneous
  Country: JP (occurrence: JP)
  Receive Date: 20241119
  Receipt Date: 20250106
  Transmission Date: 20250409
  Serious: Yes (Other)
  Sender: ASTELLAS
  Company Number: JP-ASTELLAS-2023JP013697

PATIENT
  Age: 59 Year
  Sex: Female
  Weight: 58 kg

DRUGS (14)
  1. XOSPATA [Suspect]
     Active Substance: GILTERITINIB
     Indication: Acute myeloid leukaemia
     Route: 065
     Dates: start: 20230529, end: 20230604
  2. XOSPATA [Suspect]
     Active Substance: GILTERITINIB
     Indication: Acute monocytic leukaemia
     Route: 065
     Dates: start: 20230605, end: 20230723
  3. XOSPATA [Suspect]
     Active Substance: GILTERITINIB
     Route: 065
     Dates: start: 20230724, end: 20230731
  4. XOSPATA [Suspect]
     Active Substance: GILTERITINIB
     Route: 065
     Dates: start: 20230924, end: 20231010
  5. XOSPATA [Suspect]
     Active Substance: GILTERITINIB
     Route: 065
     Dates: start: 20231011, end: 20231031
  6. XOSPATA [Suspect]
     Active Substance: GILTERITINIB
     Route: 065
     Dates: start: 20231101
  7. TACROLIMUS [Suspect]
     Active Substance: TACROLIMUS
     Indication: Stem cell transplant
     Route: 065
     Dates: start: 2023, end: 2023
  8. IDARUBICIN HYDROCHLORIDE [Concomitant]
     Active Substance: IDARUBICIN HYDROCHLORIDE
     Indication: Acute monocytic leukaemia
     Route: 065
     Dates: start: 2023, end: 2023
  9. CYTARABINE [Concomitant]
     Active Substance: CYTARABINE
     Indication: Acute monocytic leukaemia
     Route: 065
     Dates: start: 2023, end: 2023
  10. CYTARABINE [Concomitant]
     Active Substance: CYTARABINE
     Route: 065
     Dates: start: 2023, end: 2023
  11. FLUDARABINE PHOSPHATE [Concomitant]
     Active Substance: FLUDARABINE PHOSPHATE
     Indication: Stem cell transplant
     Route: 065
     Dates: start: 2023, end: 2023
  12. BUSULFAN [Concomitant]
     Active Substance: BUSULFAN
     Indication: Stem cell transplant
     Route: 065
     Dates: start: 2023, end: 2023
  13. CYCLOPHOSPHAMIDE [Concomitant]
     Active Substance: CYCLOPHOSPHAMIDE
     Indication: Stem cell transplant
     Route: 065
     Dates: start: 2023, end: 2023
  14. MYCOPHENOLATE MOFETIL [Concomitant]
     Active Substance: MYCOPHENOLATE MOFETIL
     Indication: Stem cell transplant
     Route: 065
     Dates: start: 2023, end: 2023

REACTIONS (7)
  - Interstitial lung disease [Recovering/Resolving]
  - Hepatic function abnormal [Recovered/Resolved]
  - Full blood count decreased [Recovered/Resolved]
  - Hepatic function abnormal [Recovered/Resolved]
  - Rash [Recovering/Resolving]
  - Neutrophil count decreased [Unknown]
  - Platelet count decreased [Unknown]

NARRATIVE: CASE EVENT DATE: 20230101
